FAERS Safety Report 4397175-X (Version None)
Quarter: 2004Q3

REPORT INFORMATION
  Report Type: 
  Country: None (occurrence: None)
  Receive Date: 20040708
  Receipt Date: 20040623
  Transmission Date: 20050211
  Serious: Yes (Hospitalization)
  Sender: FDA-Public Use
  Company Number: ES-JNJFOC-20040700749

PATIENT
  Age: 34 Year
  Sex: Male

DRUGS (8)
  1. HALDOL [Suspect]
     Indication: PSYCHOMOTOR AGITATION
     Dosage: 2.08 MG/HR, INTRAVENOUS
     Route: 042
  2. ALPRAZOLAM [Concomitant]
  3. PIPERACILLIN/TAZOBACTAM (PIP/TAZO) [Concomitant]
  4. PANTOPRAZOL (PANTOPRAZOLE) [Concomitant]
  5. PARACETAMOL (PARACETAMOL) [Concomitant]
  6. VIT B1 (THIAMINE HYDROCHLORIDE) [Concomitant]
  7. VIT B6 (PYRIDOXINE HYDROCHLORIDE) [Concomitant]
  8. VIT B12 (CYANOCOBALAMIN) [Concomitant]

REACTIONS (2)
  - TORSADE DE POINTES [None]
  - VENTRICULAR FIBRILLATION [None]
